FAERS Safety Report 4769672-6 (Version None)
Quarter: 2005Q3

REPORT INFORMATION
  Report Type: 
  Country: None (occurrence: None)
  Receive Date: 20050915
  Receipt Date: 20050225
  Transmission Date: 20060218
  Serious: No
  Sender: FDA-Public Use
  Company Number: US-GLAXOSMITHKLINE-A0547347A

PATIENT
  Age: 62 Year

DRUGS (1)
  1. ABREVA [Suspect]

REACTIONS (4)
  - CHAPPED LIPS [None]
  - CHEILITIS [None]
  - DRUG INEFFECTIVE [None]
  - HERPES SIMPLEX [None]
